FAERS Safety Report 5045210-8 (Version None)
Quarter: 2006Q3

REPORT INFORMATION
  Report Type: 
  Country: None (occurrence: None)
  Receive Date: 20060707
  Receipt Date: 20060607
  Transmission Date: 20061208
  Serious: Yes (Hospitalization)
  Sender: FDA-Public Use
  Company Number: HK-GLAXOSMITHKLINE-B0426959A

PATIENT

DRUGS (2)
  1. GW679769 [Suspect]
     Dosage: 30MG PER DAY
     Route: 042
     Dates: start: 20060509, end: 20060509
  2. ONDANSETRON HCL [Suspect]
     Dosage: 4MG PER DAY
     Route: 042
     Dates: start: 20060509, end: 20060509

REACTIONS (1)
  - MENORRHAGIA [None]
